FAERS Safety Report 5941214-9 (Version None)
Quarter: 2008Q4

REPORT INFORMATION
  Report Type: 
  Country: None (occurrence: None)
  Receive Date: 20081104
  Receipt Date: 20081023
  Transmission Date: 20090506
  Serious: Yes (Other)
  Sender: FDA-Public Use
  Company Number: JP-PFIZER INC-2008076994

PATIENT
  Sex: Male

DRUGS (4)
  1. ZITHROMAX [Suspect]
     Indication: PHARYNGITIS
     Dosage: DAILY DOSE:500MG
     Route: 048
     Dates: start: 20080908, end: 20080910
  2. LOXOPROFEN SODIUM [Suspect]
     Indication: ARTHRALGIA
     Dosage: DAILY DOSE:180MG-FREQ:FREQUENCY: TID
     Route: 048
     Dates: start: 20080908, end: 20080916
  3. LOXOPROFEN SODIUM [Suspect]
     Indication: PYREXIA
  4. LOXOPROFEN SODIUM [Suspect]
     Indication: OROPHARYNGEAL PAIN

REACTIONS (4)
  - ACUTE PRERENAL FAILURE [None]
  - ATRIAL FIBRILLATION [None]
  - DIARRHOEA [None]
  - HYPOKALAEMIA [None]
